FAERS Safety Report 25963465 (Version 1)
Quarter: 2025Q4

REPORT INFORMATION
  Report Type: Spontaneous
  Country: US (occurrence: None)
  Receive Date: 20251024
  Receipt Date: 20251024
  Transmission Date: 20260118
  Serious: Yes (Hospitalization)
  Sender: FDA-CTU
  Company Number: None

PATIENT
  Sex: Male

DRUGS (2)
  1. RETEVMO [Suspect]
     Active Substance: SELPERCATINIB
     Indication: Thyroid cancer
     Dosage: 120 MG TWICE A DAY ORAL
     Route: 048
     Dates: start: 20250519
  2. RETEVMO [Suspect]
     Active Substance: SELPERCATINIB
     Indication: Essential thrombocythaemia

REACTIONS (1)
  - Myalgia [None]
